FAERS Safety Report 9970584 (Version 1)
Quarter: 2014Q1

REPORT INFORMATION
  Report Type: Spontaneous
  Country: FR (occurrence: FR)
  Receive Date: 20140306
  Receipt Date: 20140306
  Transmission Date: 20141002
  Serious: Yes (Life-Threatening, Hospitalization)
  Sender: FDA-Public Use
  Company Number: FR-ASTRAZENECA-2014SE15454

PATIENT
  Age: 13787 Day
  Sex: Male

DRUGS (6)
  1. XEROQUEL [Suspect]
     Route: 048
  2. XEROQUEL [Suspect]
     Route: 048
     Dates: start: 20130820, end: 20130820
  3. IXPRIM [Suspect]
     Route: 048
     Dates: start: 20130820, end: 20130820
  4. CODOLIPRANE ADULTES [Suspect]
     Route: 048
     Dates: start: 20130820, end: 20130820
  5. LAMICTAL [Suspect]
     Route: 048
     Dates: start: 20130820, end: 20130820
  6. LOXAPAC [Concomitant]
     Dosage: IF NEEDED
     Route: 048

REACTIONS (2)
  - Coma [Recovered/Resolved]
  - Intentional drug misuse [Unknown]
